FAERS Safety Report 21151709 (Version 2)
Quarter: 2022Q3

REPORT INFORMATION
  Report Type: Spontaneous
  Country: US (occurrence: US)
  Receive Date: 20220730
  Receipt Date: 20220811
  Transmission Date: 20221027
  Serious: Yes (Hospitalization, Other)
  Sender: FDA-Public Use
  Company Number: US-BIOVITRUM-2022US09072

PATIENT
  Age: 34 Year
  Sex: Female

DRUGS (6)
  1. DOPTELET [Suspect]
     Active Substance: AVATROMBOPAG MALEATE
     Indication: Immune thrombocytopenia
     Dates: start: 20220513
  2. DOPTELET [Suspect]
     Active Substance: AVATROMBOPAG MALEATE
     Dosage: TUESDAY AND THURSDAY
     Dates: start: 20220602, end: 20220704
  3. NPLATE [Concomitant]
     Active Substance: ROMIPLOSTIM
     Dosage: 4 MCG/ KG
     Dates: start: 20220513
  4. XARELTO [Concomitant]
     Active Substance: RIVAROXABAN
     Dates: start: 20220624
  5. HEPARIN [Concomitant]
     Active Substance: HEPARIN SODIUM
     Dates: start: 20220709
  6. WARFARIN [Concomitant]
     Active Substance: WARFARIN

REACTIONS (13)
  - Systemic lupus erythematosus [Unknown]
  - Condition aggravated [Unknown]
  - Iliac artery occlusion [Unknown]
  - Peripheral ischaemia [Unknown]
  - Deep vein thrombosis [Unknown]
  - Abnormal uterine bleeding [Unknown]
  - Echocardiogram abnormal [Unknown]
  - Ejection fraction decreased [Unknown]
  - Platelet count abnormal [Unknown]
  - Cyanosis [Recovered/Resolved]
  - Arterial thrombosis [Unknown]
  - Anaemia [Unknown]
  - Pain in extremity [Recovered/Resolved]

NARRATIVE: CASE EVENT DATE: 20220709
